FAERS Safety Report 14074899 (Version 2)
Quarter: 2018Q3

REPORT INFORMATION
  Report Type: Spontaneous
  Country: AR (occurrence: AR)
  Receive Date: 20171010
  Receipt Date: 20180827
  Transmission Date: 20181010
  Serious: Yes (Death, Other)
  Sender: FDA-Public Use
  Company Number: AR-PFIZER INC-2017433852

PATIENT
  Age: 61 Year
  Sex: Male

DRUGS (1)
  1. SUTENT [Suspect]
     Active Substance: SUNITINIB MALATE
     Dosage: 50 MG, CYCLIC (14 DAYS TREATMENT AND 14  DAYS REST)
     Dates: start: 20170210

REACTIONS (3)
  - Head injury [Recovering/Resolving]
  - Thrombosis [Recovering/Resolving]
  - Death [Fatal]

NARRATIVE: CASE EVENT DATE: 2017
